FAERS Safety Report 13246008 (Version 1)
Quarter: 2017Q1

REPORT INFORMATION
  Report Type: Spontaneous
  Country: FR (occurrence: FR)
  Receive Date: 20170217
  Receipt Date: 20170217
  Transmission Date: 20170428
  Serious: Yes (Other)
  Sender: FDA-Public Use
  Company Number: FR-JNJFOC-20170216515

PATIENT
  Age: 75 Year
  Sex: Male

DRUGS (4)
  1. CONTRAMAL [Suspect]
     Active Substance: TRAMADOL HYDROCHLORIDE
     Indication: PRODUCT USED FOR UNKNOWN INDICATION
     Route: 065
     Dates: start: 20161123, end: 20161225
  2. LEVOFLOXACINE [Suspect]
     Active Substance: LEVOFLOXACIN
     Indication: INTERVERTEBRAL DISCITIS
     Route: 048
     Dates: start: 20161210, end: 20161223
  3. RIFAMPICINE [Suspect]
     Active Substance: RIFAMPIN
     Indication: INTERVERTEBRAL DISCITIS
     Route: 048
     Dates: start: 20161210, end: 20161220
  4. FUROSEMIDE. [Suspect]
     Active Substance: FUROSEMIDE
     Indication: PRODUCT USED FOR UNKNOWN INDICATION
     Route: 042
     Dates: start: 20161220, end: 20161221

REACTIONS (4)
  - Acute kidney injury [Recovering/Resolving]
  - Erythema [Recovering/Resolving]
  - Eosinophilia [Not Recovered/Not Resolved]
  - Purpura [Recovering/Resolving]

NARRATIVE: CASE EVENT DATE: 20161221
